FAERS Safety Report 5076514-0 (Version None)
Quarter: 2006Q3

REPORT INFORMATION
  Report Type: 
  Country: None (occurrence: None)
  Receive Date: 20060725
  Receipt Date: 20060317
  Transmission Date: 20061208
  Serious: No
  Sender: FDA-Public Use
  Company Number: 200611692BWH

PATIENT
  Sex: Female

DRUGS (2)
  1. NEXAVAR [Suspect]
     Dosage: ORAL
     Route: 048
  2. ACCUPRIL [Concomitant]

REACTIONS (2)
  - DIZZINESS [None]
  - HYPERTENSION [None]
